FAERS Safety Report 7794076-1 (Version None)
Quarter: 2011Q4

REPORT INFORMATION
  Report Type: 
  Country: None (occurrence: None)
  Receive Date: 20111004
  Receipt Date: 20110923
  Transmission Date: 20120403
  Serious: Yes (Hospitalization)
  Sender: FDA-Public Use
  Company Number: AU-JNJFOC-20110910349

PATIENT
  Sex: Female

DRUGS (4)
  1. ALPRIM [Concomitant]
     Route: 065
  2. REMICADE [Suspect]
     Route: 042
     Dates: start: 20110909
  3. REMICADE [Suspect]
     Indication: PRODUCT USED FOR UNKNOWN INDICATION
     Route: 042
  4. MS CONTIN [Concomitant]
     Route: 065

REACTIONS (6)
  - ANTIBIOTIC RESISTANT STAPHYLOCOCCUS TEST POSITIVE [None]
  - MUSCULAR WEAKNESS [None]
  - DRUG INEFFECTIVE [None]
  - ABASIA [None]
  - URINARY TRACT INFECTION [None]
  - PAIN [None]
